FAERS Safety Report 4766205-5 (Version None)
Quarter: 2005Q3

REPORT INFORMATION
  Report Type: 
  Country: None (occurrence: None)
  Receive Date: 20050912
  Receipt Date: 20050517
  Transmission Date: 20060218
  Serious: Yes (Hospitalization)
  Sender: FDA-Public Use
  Company Number: US-MERCK-0505USA02136

PATIENT
  Age: 62 Year
  Sex: Female
  Weight: 57 kg

DRUGS (2)
  1. VIOXX [Suspect]
     Indication: FIBROMYALGIA
     Route: 048
     Dates: start: 20000101, end: 20040501
  2. PREMARIN [Concomitant]
     Indication: VULVOVAGINAL DRYNESS
     Route: 065
     Dates: start: 19650101

REACTIONS (10)
  - AZOTAEMIA [None]
  - BLOOD CHOLESTEROL INCREASED [None]
  - BLOOD PRESSURE DECREASED [None]
  - CORONARY ARTERY DISEASE [None]
  - DYSPEPSIA [None]
  - EJECTION FRACTION DECREASED [None]
  - HYPERTENSION [None]
  - MYOCARDIAL INFARCTION [None]
  - OLIGURIA [None]
  - POST PROCEDURAL COMPLICATION [None]
